FAERS Safety Report 9205051 (Version 1)
Quarter: 2013Q2

REPORT INFORMATION
  Report Type: Spontaneous
  Country: US (occurrence: None)
  Receive Date: 20130401
  Receipt Date: 20130401
  Transmission Date: 20140414
  Serious: Yes (Other)
  Sender: FDA-Public Use
  Company Number: None

PATIENT
  Age: 39 Year
  Sex: Female
  Weight: 81.65 kg

DRUGS (1)
  1. HUMIRA [Suspect]
     Indication: CROHN^S DISEASE
     Dosage: 40 MG ONCE PER 2 WEEKS SQ
     Route: 058
     Dates: start: 20070601, end: 20120310

REACTIONS (25)
  - Hypoaesthesia [None]
  - Hypoaesthesia [None]
  - Paraesthesia [None]
  - Pain in extremity [None]
  - Back pain [None]
  - Paraesthesia [None]
  - Vision blurred [None]
  - Scotoma [None]
  - Headache [None]
  - Ventricular extrasystoles [None]
  - Dizziness [None]
  - Sleep disorder [None]
  - Neuralgia [None]
  - Night sweats [None]
  - Feeling hot [None]
  - Hyperhidrosis [None]
  - Cough [None]
  - Dysphagia [None]
  - Choking [None]
  - Nausea [None]
  - Vomiting [None]
  - Latent tuberculosis [None]
  - Immune system disorder [None]
  - Malaise [None]
  - Retinal pigment epitheliopathy [None]
